FAERS Safety Report 4918174-2 (Version None)
Quarter: 2006Q1

REPORT INFORMATION
  Report Type: 
  Country: None (occurrence: None)
  Receive Date: 20060215
  Receipt Date: 20060204
  Transmission Date: 20060701
  Serious: Yes (Hospitalization, Disabling)
  Sender: FDA-Public Use
  Company Number: GXKR2006CH00460

PATIENT
  Age: 62 Year
  Sex: Male

DRUGS (2)
  1. CIPROFLOXACIN [Suspect]
     Indication: ABDOMINAL PAIN UPPER
     Dates: start: 20050801
  2. METRONIDAZOLE [Suspect]

REACTIONS (6)
  - DIABETES MELLITUS NON-INSULIN-DEPENDENT [None]
  - HYPERSENSITIVITY [None]
  - PNEUMONITIS [None]
  - PULMONARY ARTERIAL PRESSURE INCREASED [None]
  - PULMONARY FIBROSIS [None]
  - SLEEP APNOEA SYNDROME [None]
